FAERS Safety Report 12095348 (Version 3)
Quarter: 2018Q2

REPORT INFORMATION
  Report Type: Spontaneous
  Country: US (occurrence: US)
  Receive Date: 20160219
  Receipt Date: 20180605
  Transmission Date: 20180711
  Serious: Yes (Hospitalization, Other)
  Sender: FDA-Public Use
  Company Number: US-GLAXOSMITHKLINE-US2016024067

PATIENT
  Age: 70 Year
  Sex: Male

DRUGS (14)
  1. ADVAIR DISKUS [Suspect]
     Active Substance: FLUTICASONE PROPIONATE\SALMETEROL XINAFOATE
     Indication: ASTHMA
     Dosage: 1 PUFF(S), QD
     Route: 055
  2. RANEXA [Concomitant]
     Active Substance: RANOLAZINE
  3. DOXAZOSIN [Concomitant]
     Active Substance: DOXAZOSIN\DOXAZOSIN MESYLATE
  4. BREO ELLIPTA [Suspect]
     Active Substance: FLUTICASONE FUROATE\VILANTEROL TRIFENATATE
     Indication: CHRONIC OBSTRUCTIVE PULMONARY DISEASE
     Dosage: 1 PUFF(S), QD
     Route: 055
     Dates: start: 201605
  5. ADVAIR DISKUS [Interacting]
     Active Substance: FLUTICASONE PROPIONATE\SALMETEROL XINAFOATE
     Indication: RESPIRATORY DISORDER
  6. REPATHA [Concomitant]
     Active Substance: EVOLOCUMAB
  7. MELOXICAM. [Concomitant]
     Active Substance: MELOXICAM
  8. ADVAIR DISKUS [Interacting]
     Active Substance: FLUTICASONE PROPIONATE\SALMETEROL XINAFOATE
     Indication: PNEUMOCONIOSIS
  9. DILTIAZEM. [Concomitant]
     Active Substance: DILTIAZEM
  10. TRAMADOL. [Concomitant]
     Active Substance: TRAMADOL
  11. ADVAIR DISKUS [Interacting]
     Active Substance: FLUTICASONE PROPIONATE\SALMETEROL XINAFOATE
     Indication: PNEUMOCONIOSIS
     Dosage: 1 PUFF(S), BID
     Route: 055
  12. ADVAIR DISKUS [Interacting]
     Active Substance: FLUTICASONE PROPIONATE\SALMETEROL XINAFOATE
     Indication: CHRONIC OBSTRUCTIVE PULMONARY DISEASE
  13. ANORO ELLIPTA [Interacting]
     Active Substance: UMECLIDINIUM BROMIDE\VILANTEROL TRIFENATATE
  14. ASPIRIN (BABY) [Concomitant]
     Active Substance: ASPIRIN

REACTIONS (17)
  - Vascular graft [Recovered/Resolved]
  - Sinus disorder [Not Recovered/Not Resolved]
  - Cardiac operation [Recovered/Resolved]
  - Underdose [Unknown]
  - Lacrimation increased [Not Recovered/Not Resolved]
  - Wheezing [Unknown]
  - Rhinorrhoea [Not Recovered/Not Resolved]
  - Labelled drug-drug interaction medication error [Unknown]
  - Intentional product misuse [Unknown]
  - Choking [Not Recovered/Not Resolved]
  - Stress [Unknown]
  - Eye pruritus [Not Recovered/Not Resolved]
  - Multiple allergies [Unknown]
  - Off label use [Unknown]
  - Dyspnoea [Recovered/Resolved]
  - Hypertension [Recovered/Resolved]
  - Prescribed underdose [Recovered/Resolved]

NARRATIVE: CASE EVENT DATE: 20130406
